FAERS Safety Report 8758505 (Version 13)
Quarter: 2014Q2

REPORT INFORMATION
  Report Type: Spontaneous
  Country: US (occurrence: US)
  Receive Date: 20120829
  Receipt Date: 20140606
  Transmission Date: 20141212
  Serious: Yes (Death, Hospitalization)
  Sender: FDA-Public Use
  Company Number: US-JNJFOC-20120810973

PATIENT
  Sex: Male
  Weight: 113.4 kg

DRUGS (16)
  1. TYLENOL [Suspect]
     Route: 048
  2. TYLENOL [Suspect]
     Indication: ARTHRALGIA
     Route: 048
     Dates: start: 20090211
  3. IBUPROFEN [Suspect]
     Indication: PRODUCT USED FOR UNKNOWN INDICATION
     Route: 065
     Dates: start: 200902, end: 200906
  4. PERCOCET [OXYCODONE HYDROCHLORIDE,PARACETAMOL] [Suspect]
     Indication: PAIN
     Route: 048
  5. PERCOCET [OXYCODONE HYDROCHLORIDE,PARACETAMOL] [Suspect]
     Indication: PAIN
     Route: 048
     Dates: start: 20090211, end: 200906
  6. TYLENOL REGULAR [Suspect]
     Route: 054
  7. TYLENOL REGULAR [Suspect]
     Indication: ANALGESIC THERAPY
     Route: 054
     Dates: start: 20090211
  8. TYLOX [Suspect]
     Indication: PRODUCT USED FOR UNKNOWN INDICATION
     Route: 065
  9. ZOFRAN [Concomitant]
     Indication: NAUSEA
     Route: 042
  10. PHENERGAN [Concomitant]
     Indication: PRODUCT USED FOR UNKNOWN INDICATION
     Route: 048
  11. PHENERGAN [Concomitant]
     Indication: PRODUCT USED FOR UNKNOWN INDICATION
     Route: 048
  12. AMBIEN [Concomitant]
     Indication: PRODUCT USED FOR UNKNOWN INDICATION
     Route: 048
  13. AMBIEN [Concomitant]
     Indication: PRODUCT USED FOR UNKNOWN INDICATION
     Route: 048
  14. CARDURA [Concomitant]
     Indication: PRODUCT USED FOR UNKNOWN INDICATION
     Route: 048
  15. COLACE [Concomitant]
     Indication: PRODUCT USED FOR UNKNOWN INDICATION
     Route: 048
  16. PERCOCET-5 [Concomitant]
     Indication: PRODUCT USED FOR UNKNOWN INDICATION
     Route: 048

REACTIONS (6)
  - Hepatitis cholestatic [Fatal]
  - Septic shock [Fatal]
  - Toxicity to various agents [Fatal]
  - Liver injury [Fatal]
  - Renal failure acute [Unknown]
  - Bronchitis [Unknown]
